FAERS Safety Report 6432937-6 (Version None)
Quarter: 2009Q4

REPORT INFORMATION
  Report Type: 
  Country: None (occurrence: None)
  Receive Date: 20091109
  Receipt Date: 20091029
  Transmission Date: 20100525
  Serious: Yes (Other)
  Sender: FDA-Public Use
  Company Number: DE-JNJFOC-20091007561

PATIENT
  Age: 12 Year
  Sex: Male
  Weight: 40 kg

DRUGS (5)
  1. REMICADE [Suspect]
     Indication: UVEITIS
     Route: 042
     Dates: start: 20091004, end: 20091019
  2. REMICADE [Suspect]
     Indication: JUVENILE ARTHRITIS
     Dosage: 2 INFUSIONS
     Route: 042
     Dates: start: 20091004, end: 20091019
  3. INFLANEFRAN [Concomitant]
     Indication: UVEITIS
  4. METHOTREXATE [Concomitant]
     Indication: JUVENILE ARTHRITIS
  5. FOLIC ACID [Concomitant]
     Indication: JUVENILE ARTHRITIS

REACTIONS (5)
  - DYSPNOEA [None]
  - HYPERTENSION [None]
  - INFUSION RELATED REACTION [None]
  - RASH [None]
  - TACHYCARDIA [None]
